FAERS Safety Report 23093818 (Version 1)
Quarter: 2023Q4

REPORT INFORMATION
  Report Type: Spontaneous
  Country: GR (occurrence: GR)
  Receive Date: 20231023
  Receipt Date: 20231023
  Transmission Date: 20240109
  Serious: Yes (Death, Hospitalization, Other)
  Sender: FDA-Public Use
  Company Number: GR-AMGEN-GRCSP2023186082

PATIENT

DRUGS (1)
  1. PROLIA [Suspect]
     Active Substance: DENOSUMAB
     Indication: Osteoporosis
     Dosage: UNK
     Route: 065

REACTIONS (13)
  - Death [Fatal]
  - Neoplasm malignant [Fatal]
  - Cardiovascular disorder [Fatal]
  - Diabetes mellitus [Fatal]
  - Adverse event [Fatal]
  - Lung disorder [Fatal]
  - Hip fracture [Unknown]
  - Dementia [Unknown]
  - Cardiac failure chronic [Unknown]
  - Hemiplegia [Unknown]
  - Lower respiratory tract infection [Unknown]
  - Peripheral vascular disorder [Unknown]
  - Urinary tract infection [Unknown]
